FAERS Safety Report 16918726 (Version 1)
Quarter: 2019Q4

REPORT INFORMATION
  Report Type: Spontaneous
  Country: US (occurrence: US)
  Receive Date: 20191014
  Receipt Date: 20191014
  Transmission Date: 20200122
  Serious: Yes (Other)
  Sender: FDA-Public Use
  Company Number: None

PATIENT
  Age: 84 Year
  Sex: Male

DRUGS (2)
  1. N/A [Concomitant]
     Active Substance: UNSPECIFIED INGREDIENT
  2. REPATHA [Suspect]
     Active Substance: EVOLOCUMAB
     Indication: PRODUCT USED FOR UNKNOWN INDICATION
     Dosage: ?          OTHER FREQUENCY:ONCE A MONTH;?
     Route: 058
     Dates: start: 20180116

REACTIONS (1)
  - Neoplasm malignant [None]
